FAERS Safety Report 15499457 (Version 2)
Quarter: 2018Q4

REPORT INFORMATION
  Report Type: Spontaneous
  Country: US (occurrence: US)
  Receive Date: 20181015
  Receipt Date: 20181107
  Transmission Date: 20190205
  Serious: No
  Sender: FDA-Public Use
  Company Number: US-PFIZER INC-2018417361

PATIENT
  Age: 63 Year
  Sex: Female

DRUGS (2)
  1. LYRICA [Suspect]
     Active Substance: PREGABALIN
     Indication: FIBROMYALGIA
  2. LYRICA [Suspect]
     Active Substance: PREGABALIN
     Indication: NEUROPATHY PERIPHERAL
     Dosage: 150 MG, UNK

REACTIONS (7)
  - Frustration tolerance decreased [Unknown]
  - Fear of death [Unknown]
  - Neck injury [Unknown]
  - Insomnia [Unknown]
  - Pain [Unknown]
  - Back injury [Unknown]
  - Malaise [Unknown]
